FAERS Safety Report 5793860-3 (Version None)
Quarter: 2008Q2

REPORT INFORMATION
  Report Type: 
  Country: None (occurrence: None)
  Receive Date: 20080627
  Receipt Date: 20080610
  Transmission Date: 20081010
  Serious: No
  Sender: FDA-Public Use
  Company Number: US-BOEHRINGER INGELHEIM GMBH, GERMANY-2008-BP-09148BP

PATIENT
  Age: 75 Year
  Sex: Male

DRUGS (1)
  1. SPIRIVA [Suspect]
     Indication: CHRONIC OBSTRUCTIVE PULMONARY DISEASE
     Route: 055
     Dates: start: 20080606

REACTIONS (3)
  - INCREASED VISCOSITY OF BRONCHIAL SECRETION [None]
  - PRODUCTIVE COUGH [None]
  - THROAT IRRITATION [None]
